FAERS Safety Report 11798223 (Version 4)
Quarter: 2016Q1

REPORT INFORMATION
  Report Type: Spontaneous
  Country: JP (occurrence: JP)
  Receive Date: 20151203
  Receipt Date: 20160311
  Transmission Date: 20160525
  Serious: Yes (Death, Life-Threatening, Hospitalization)
  Sender: FDA-Public Use
  Company Number: JP-ELI_LILLY_AND_COMPANY-JP201511009147

PATIENT
  Age: 69 Year
  Sex: Male
  Weight: 50.4 kg

DRUGS (6)
  1. BENAMBAX [Concomitant]
     Active Substance: PENTAMIDINE
     Dosage: UNK, MONTHLY (1/M)
     Route: 055
  2. RINDERON                           /00008501/ [Suspect]
     Active Substance: BETAMETHASONE
     Indication: NAUSEA
     Dosage: UNK
     Route: 042
     Dates: start: 20150622
  3. RINDERON                           /00008501/ [Suspect]
     Active Substance: BETAMETHASONE
     Dosage: UNK
     Route: 048
     Dates: start: 20150708
  4. RINDERON                           /00008501/ [Suspect]
     Active Substance: BETAMETHASONE
     Dosage: UNK
     Route: 048
     Dates: start: 20150715
  5. CYRAMZA [Suspect]
     Active Substance: RAMUCIRUMAB
     Indication: GASTRIC CANCER STAGE IV
     Dosage: 403 MG, OTHER
     Route: 042
     Dates: start: 20150929, end: 20151103
  6. PACLITAXEL. [Suspect]
     Active Substance: PACLITAXEL
     Indication: GASTRIC CANCER STAGE IV
     Dosage: 120 MG, OTHER
     Route: 042
     Dates: start: 20150929, end: 20151103

REACTIONS (4)
  - Pneumonia [Fatal]
  - Hypertension [Unknown]
  - Febrile neutropenia [Recovered/Resolved]
  - Pancytopenia [Fatal]

NARRATIVE: CASE EVENT DATE: 20150930
